FAERS Safety Report 18474876 (Version 2)
Quarter: 2024Q2

REPORT INFORMATION
  Report Type: Report from Study
  Country: KR (occurrence: KR)
  Receive Date: 20201106
  Receipt Date: 20240530
  Transmission Date: 20240716
  Serious: Yes (Hospitalization)
  Sender: FDA-Public Use
  Company Number: KR-AC-055-508-002-002-017

PATIENT
  Age: 62 Year
  Sex: Female
  Weight: 48.3 kg

DRUGS (66)
  1. OPSUMIT [Suspect]
     Active Substance: MACITENTAN
     Indication: Pulmonary arterial hypertension
     Dosage: 10 MG, QD
     Route: 048
     Dates: start: 20180111
  2. OPSUMIT [Suspect]
     Active Substance: MACITENTAN
     Indication: Pulmonary hypertension
  3. UPTRAVI [Suspect]
     Active Substance: SELEXIPAG
     Indication: Pulmonary arterial hypertension
     Dosage: 1200 MCG, BID
     Route: 048
     Dates: start: 20180330, end: 20180507
  4. UPTRAVI [Suspect]
     Active Substance: SELEXIPAG
     Dosage: 200 MCG, BID
     Route: 048
     Dates: start: 20180111, end: 20180125
  5. UPTRAVI [Suspect]
     Active Substance: SELEXIPAG
     Dosage: 200 MCG, QID
     Route: 048
     Dates: start: 20180126, end: 20180222
  6. UPTRAVI [Suspect]
     Active Substance: SELEXIPAG
     Dosage: 1200 MCG, BID
     Route: 048
     Dates: start: 20180223, end: 20180308
  7. UPTRAVI [Suspect]
     Active Substance: SELEXIPAG
     Dosage: 1600 MCG, QD
     Route: 048
     Dates: start: 20180309, end: 20180329
  8. UPTRAVI [Suspect]
     Active Substance: SELEXIPAG
     Dosage: 100 MCG, QD
     Route: 048
     Dates: start: 20180609, end: 20180616
  9. UPTRAVI [Suspect]
     Active Substance: SELEXIPAG
     Dosage: 200 MCG, QD
     Route: 048
     Dates: start: 20180617
  10. WARFARIN [Suspect]
     Active Substance: WARFARIN
     Indication: Product used for unknown indication
     Dosage: 4.5 MG, QD
     Route: 048
     Dates: end: 20180222
  11. WARFARIN [Suspect]
     Active Substance: WARFARIN
     Dosage: 4.0 MG, QD
     Route: 048
     Dates: start: 20180223, end: 20180830
  12. WARFARIN [Suspect]
     Active Substance: WARFARIN
     Dosage: 4.5 MG, QD
     Route: 048
     Dates: start: 20180402, end: 20180403
  13. WARFARIN [Suspect]
     Active Substance: WARFARIN
     Dosage: 4 MG, QD
     Route: 048
     Dates: start: 20180404, end: 20180426
  14. WARFARIN [Suspect]
     Active Substance: WARFARIN
     Dosage: 3.5 MG, QD
     Route: 048
     Dates: start: 20180427, end: 20180507
  15. LASIX [Concomitant]
     Active Substance: FUROSEMIDE
     Dosage: 2.5 DF, QD
     Route: 048
     Dates: start: 20180110, end: 20180329
  16. LASIX [Concomitant]
     Active Substance: FUROSEMIDE
     Dosage: 3 DF, QD
     Route: 048
     Dates: start: 20180404, end: 20180604
  17. LASIX [Concomitant]
     Active Substance: FUROSEMIDE
     Dosage: 5 MG/HR, QD
     Route: 042
     Dates: start: 20180604, end: 20180608
  18. LASIX [Concomitant]
     Active Substance: FUROSEMIDE
     Dosage: 2 DF, QD
     Route: 048
     Dates: start: 20180619
  19. SILDENAFIL CITRATE [Concomitant]
     Active Substance: SILDENAFIL CITRATE
     Indication: Pulmonary arterial hypertension
     Dosage: 60 MG, TID
     Route: 048
     Dates: end: 20180401
  20. DIGOXIN [Concomitant]
     Active Substance: DIGOXIN
     Dosage: .50 TBS, QD
     Route: 048
     Dates: end: 20180524
  21. LEVOTHYROXINE SODIUM [Concomitant]
     Active Substance: LEVOTHYROXINE SODIUM
     Dosage: 25 UG, UNK
     Route: 048
  22. UDENAFIL [Concomitant]
     Active Substance: UDENAFIL
     Indication: Pulmonary arterial hypertension
     Dosage: 100 MG, UNK
     Dates: start: 20180402, end: 20180611
  23. SPIRONOLACTONE [Concomitant]
     Active Substance: SPIRONOLACTONE
     Dosage: 25 MG, QD?1 DF
     Route: 048
     Dates: start: 20180427, end: 20180604
  24. SPIRONOLACTONE [Concomitant]
     Active Substance: SPIRONOLACTONE
     Dosage: 25 MG, QD?1 DF
     Route: 048
     Dates: start: 20180615
  25. CIALIS [Concomitant]
     Active Substance: TADALAFIL
     Indication: Pulmonary arterial hypertension
     Dosage: 40 MG, QD
     Route: 048
     Dates: start: 20180612
  26. PLAVIX [Concomitant]
     Active Substance: CLOPIDOGREL BISULFATE
     Dosage: 75 MG, QD
     Route: 048
     Dates: start: 20180518, end: 20180526
  27. SODIUM BICARBONATE [Concomitant]
     Active Substance: SODIUM BICARBONATE
     Dosage: 91 ML, QD
     Route: 042
     Dates: start: 20180528, end: 20180528
  28. FLUCARE [FLUCONAZOLE] [Concomitant]
     Dosage: 2400 MG, QD
     Route: 048
     Dates: start: 20180528, end: 20180530
  29. DOPAMIX [Concomitant]
     Dosage: 7 ML/HR, QD
     Route: 042
     Dates: start: 20180604, end: 20180612
  30. DOPAMIX [Concomitant]
     Dosage: 9 ML/HR, QD
     Route: 042
     Dates: start: 20180613, end: 20180613
  31. DOPAMIX [Concomitant]
     Dosage: 7 ML/HR, QD
     Route: 042
     Dates: start: 20180614, end: 20180614
  32. DOPAMIX [Concomitant]
     Dosage: 9 ML/HR, QD
     Route: 042
     Dates: start: 20180615, end: 20180619
  33. DOPAMIX [Concomitant]
     Dosage: 7 ML/HR, QD
     Route: 042
     Dates: start: 20180620, end: 20180620
  34. DOPAMIX [Concomitant]
     Dosage: 84 ML, QD
     Route: 042
     Dates: start: 20180621, end: 20180621
  35. DOPAMIX [Concomitant]
     Dosage: 2 ML/HR, QD
     Route: 042
     Dates: start: 20180622, end: 20180622
  36. K CONTIN CONTINUS [Concomitant]
     Dosage: 2 DF, BID
     Route: 048
     Dates: start: 20180605, end: 20180606
  37. CORDARONE [Concomitant]
     Active Substance: AMIODARONE HYDROCHLORIDE
     Dosage: 150 MG, QD
     Route: 042
     Dates: start: 20180608, end: 20180608
  38. CORDARONE [Concomitant]
     Active Substance: AMIODARONE HYDROCHLORIDE
     Dosage: 870 MG, QD
     Route: 042
     Dates: start: 20180609, end: 20180609
  39. CORDARONE [Concomitant]
     Active Substance: AMIODARONE HYDROCHLORIDE
     Dosage: 800 MG, QD
     Route: 048
     Dates: start: 20180610, end: 20180611
  40. CORDARONE [Concomitant]
     Active Substance: AMIODARONE HYDROCHLORIDE
     Dosage: 555 MG, QD
     Route: 042
     Dates: start: 20180611, end: 20180611
  41. CORDARONE [Concomitant]
     Active Substance: AMIODARONE HYDROCHLORIDE
     Dosage: 800 MG, QD
     Route: 048
     Dates: start: 20180613
  42. FEBUXOSTAT [Concomitant]
     Active Substance: FEBUXOSTAT
     Dosage: 40 MG, QD
     Route: 048
     Dates: start: 20180609, end: 20180614
  43. TRESTAN [CYANOCOBALAMIN] [Concomitant]
     Dosage: 2 DF, QD
     Route: 048
     Dates: start: 20180610
  44. NORPIN [NOREPINEPHRINE] [Concomitant]
     Dosage: 0.05 UG/KG, QD
     Route: 042
     Dates: start: 20180613, end: 20180617
  45. NORPIN [NOREPINEPHRINE] [Concomitant]
     Dosage: 0.02 UG/KG, QD
     Route: 042
     Dates: start: 20180618, end: 20180619
  46. DICHLOZID [Concomitant]
     Dosage: 12.5 MG, QD
     Route: 048
     Dates: start: 20180622
  47. MACPERAN [METOCLOPRAMIDE HYDROCHLORIDE] [Concomitant]
     Indication: Nausea
     Dosage: 3 DF, QD
     Route: 048
     Dates: start: 20180112, end: 20180507
  48. CANRENOATE POTASSIUM [Concomitant]
     Active Substance: CANRENOATE POTASSIUM
     Dosage: 25 MG, QD
     Route: 048
     Dates: start: 20180427, end: 20180604
  49. CANRENOATE POTASSIUM [Concomitant]
     Active Substance: CANRENOATE POTASSIUM
     Dosage: 25 MG, QD
     Route: 048
     Dates: start: 20180615
  50. AMIODARONE HYDROCHLORIDE [Concomitant]
     Active Substance: AMIODARONE HYDROCHLORIDE
     Dosage: 4 DF
     Route: 048
     Dates: start: 20180613
  51. AMIODARONE HYDROCHLORIDE [Concomitant]
     Active Substance: AMIODARONE HYDROCHLORIDE
     Route: 065
     Dates: start: 20180609, end: 20180609
  52. AMIODARONE HYDROCHLORIDE [Concomitant]
     Active Substance: AMIODARONE HYDROCHLORIDE
     Route: 065
     Dates: start: 20180608, end: 20180608
  53. AMIODARONE HYDROCHLORIDE [Concomitant]
     Active Substance: AMIODARONE HYDROCHLORIDE
     Route: 065
     Dates: start: 20180611, end: 20180611
  54. AMIODARONE HYDROCHLORIDE [Concomitant]
     Active Substance: AMIODARONE HYDROCHLORIDE
     Dosage: 4 DF
     Route: 048
     Dates: start: 20180610, end: 20180611
  55. HYDROCHLOROTHIAZIDE [Concomitant]
     Active Substance: HYDROCHLOROTHIAZIDE
     Dosage: .5 DF
     Route: 048
     Dates: start: 20180622
  56. FUROSEMIDE [Concomitant]
     Active Substance: FUROSEMIDE
     Dosage: 2.5 DF
     Route: 048
     Dates: start: 20180110, end: 20180329
  57. FUROSEMIDE [Concomitant]
     Active Substance: FUROSEMIDE
     Dosage: 3 DF
     Route: 048
     Dates: start: 20180404, end: 20180604
  58. FUROSEMIDE [Concomitant]
     Active Substance: FUROSEMIDE
     Route: 048
     Dates: start: 20180604, end: 20180608
  59. FUROSEMIDE [Concomitant]
     Active Substance: FUROSEMIDE
     Dosage: 2 DF
     Route: 048
     Dates: start: 20180619
  60. LEVOTHYROXINE SODIUM [Concomitant]
     Active Substance: LEVOTHYROXINE SODIUM
     Dosage: .5 DF
     Route: 048
  61. SILDENAFIL CITRATE [Concomitant]
     Active Substance: SILDENAFIL CITRATE
     Dosage: 3 DF
     Route: 048
     Dates: start: 20180401
  62. DIGOXIN [Concomitant]
     Active Substance: DIGOXIN
     Dosage: .5 DF
     Route: 048
     Dates: end: 20180524
  63. ACETYLCYSTEINE [Concomitant]
     Active Substance: ACETYLCYSTEINE
     Dosage: 12 DF
     Route: 048
     Dates: start: 20180528, end: 20180530
  64. POTASSIUM CHLORIDE [Concomitant]
     Active Substance: POTASSIUM CHLORIDE
     Dosage: 2 DF
     Route: 048
     Dates: start: 20180605, end: 20180606
  65. CYPROHEPTADINE OROTATE [Concomitant]
     Dosage: 2 DF
     Route: 048
     Dates: start: 20180610
  66. L-LYSINE HYDROCHLORIDE [Concomitant]
     Dosage: 2 DF
     Route: 048
     Dates: start: 20180610

REACTIONS (10)
  - Pulmonary hypertension [Recovered/Resolved]
  - Haematochezia [Recovered/Resolved]
  - Pulmonary embolism [Recovered/Resolved]
  - Right ventricular failure [Recovered/Resolved]
  - Enterocolitis [Recovered/Resolved]
  - Melaena [Not Recovered/Not Resolved]
  - Diarrhoea [Not Recovered/Not Resolved]
  - Headache [Not Recovered/Not Resolved]
  - Pleural effusion [Recovered/Resolved]
  - International normalised ratio increased [Unknown]

NARRATIVE: CASE EVENT DATE: 20180101
